FAERS Safety Report 25723733 (Version 1)
Quarter: 2025Q3

REPORT INFORMATION
  Report Type: Report from Study
  Country: EG (occurrence: EG)
  Receive Date: 20250825
  Receipt Date: 20250825
  Transmission Date: 20251021
  Serious: Yes (Hospitalization, Other)
  Sender: NOVARTIS
  Company Number: EG-002147023-NVSC2024EG082904

PATIENT
  Age: 48 Year
  Sex: Female

DRUGS (2)
  1. MAYZENT [Suspect]
     Active Substance: SIPONIMOD
     Indication: Multiple sclerosis
     Dosage: 2 MG (START DATE: ONE YEAR AND 4 MONTHS AGO)
     Route: 048
     Dates: start: 20240408
  2. CORTISONE [Concomitant]
     Active Substance: CORTISONE
     Indication: Drug withdrawal maintenance therapy
     Route: 048
     Dates: start: 20240811

REACTIONS (18)
  - Pyrexia [Recovered/Resolved]
  - Multiple sclerosis relapse [Recovered/Resolved]
  - Visual impairment [Not Recovered/Not Resolved]
  - Hypoaesthesia [Not Recovered/Not Resolved]
  - C-reactive protein increased [Recovered/Resolved]
  - Urethritis [Recovered/Resolved]
  - Urethritis [Not Recovered/Not Resolved]
  - Urethral pain [Not Recovered/Not Resolved]
  - Blood glucose increased [Recovered/Resolved]
  - Tremor [Recovered/Resolved]
  - Anal incontinence [Recovered/Resolved]
  - Depression [Not Recovered/Not Resolved]
  - Purpura [Not Recovered/Not Resolved]
  - Pruritus [Recovered/Resolved]
  - Eye pain [Unknown]
  - Headache [Not Recovered/Not Resolved]
  - Gait inability [Recovered/Resolved]
  - Dysstasia [Recovered/Resolved]

NARRATIVE: CASE EVENT DATE: 20240401
